FAERS Safety Report 9458046 (Version 2)
Quarter: 2013Q3

REPORT INFORMATION
  Report Type: Spontaneous
  Country: US (occurrence: US)
  Receive Date: 20130814
  Receipt Date: 20130823
  Transmission Date: 20140515
  Serious: No
  Sender: FDA-Public Use
  Company Number: US-009507513-1308USA006124

PATIENT
  Sex: Female

DRUGS (1)
  1. COPPERTONE KIDS WET + CLEAR CONTINUOUS SPRAY SPF 45 [Suspect]
     Indication: PRODUCT USED FOR UNKNOWN INDICATION
     Dosage: UNK, UNKNOWN
     Route: 061
     Dates: start: 20130713

REACTIONS (4)
  - Skin irritation [Unknown]
  - Rash [Not Recovered/Not Resolved]
  - Photosensitivity reaction [Not Recovered/Not Resolved]
  - Rash papular [Not Recovered/Not Resolved]
